FAERS Safety Report 23761202 (Version 2)
Quarter: 2024Q2

REPORT INFORMATION
  Report Type: Spontaneous
  Country: US (occurrence: US)
  Receive Date: 20240419
  Receipt Date: 20240506
  Transmission Date: 20240716
  Serious: No
  Sender: FDA-Public Use
  Company Number: US-AMGEN-USASP2024077634

PATIENT

DRUGS (1)
  1. PROCRIT [Suspect]
     Active Substance: ERYTHROPOIETIN
     Indication: Product used for unknown indication
     Dosage: UNK (10,000 UNITS/ 1ML, PROCRIT 20,000 UNITS/ 1 ML, AND PROCRIT 20,000 UNITS /2 ML)
     Route: 065

REACTIONS (2)
  - Product storage error [Unknown]
  - Product administration error [Unknown]
